FAERS Safety Report 10058695 (Version 2)
Quarter: 2014Q2

REPORT INFORMATION
  Report Type: Spontaneous
  Country: US (occurrence: US)
  Receive Date: 20140404
  Receipt Date: 20140415
  Transmission Date: 20141212
  Serious: No
  Sender: FDA-Public Use
  Company Number: US-BAYER-2014-047706

PATIENT
  Age: 50 Year
  Sex: Female

DRUGS (3)
  1. MIRENA [Suspect]
     Indication: MENORRHAGIA
     Dosage: 20 ?G/D, CONT
     Route: 015
     Dates: start: 20140318
  2. IBUPROFEN [Concomitant]
     Dosage: 600 MG, UNK
     Dates: start: 20140318
  3. KARIVA [Concomitant]

REACTIONS (11)
  - Complication of device insertion [None]
  - Procedural pain [None]
  - Hyperventilation [None]
  - Back pain [None]
  - Arthralgia [None]
  - Abdominal pain [None]
  - Tremor [None]
  - Hypoaesthesia [None]
  - Hypoaesthesia oral [None]
  - Disorientation [None]
  - Pelvic pain [Not Recovered/Not Resolved]
